FAERS Safety Report 8773773 (Version 1)
Quarter: 2012Q4

REPORT INFORMATION
  Report Type: 
  Country: US (occurrence: US)
  Receive Date: 20120907
  Receipt Date: 20120907
  Transmission Date: 20130627
  Serious: No
  Sender: FDA-Public Use
  Company Number: US-PFIZER INC-2012219307

PATIENT
  Age: 69 Year
  Sex: Male
  Weight: 100 kg

DRUGS (2)
  1. CELEBREX [Suspect]
     Indication: BACK PAIN
     Dosage: 200 mg, 1x/day
     Route: 048
  2. CELEBREX [Suspect]
     Indication: SURGERY

REACTIONS (2)
  - Red cell distribution width abnormal [Unknown]
  - Mean platelet volume abnormal [Unknown]
